FAERS Safety Report 8372901-3 (Version None)
Quarter: 2012Q2

REPORT INFORMATION
  Report Type: 
  Country: None (occurrence: None)
  Receive Date: 20120521
  Receipt Date: 20120511
  Transmission Date: 20120825
  Serious: No
  Sender: FDA-Public Use
  Company Number: US-BAYER-2012-040393

PATIENT
  Sex: Female

DRUGS (2)
  1. MIRENA [Suspect]
     Indication: CONTRACEPTION
     Dosage: 20 MCG/24HR, CONT
     Route: 015
     Dates: start: 20110922, end: 20120423
  2. UNKNOWN DRUG [Concomitant]
     Indication: POST COITAL CONTRACEPTION
     Dosage: UNK
     Dates: start: 20120424, end: 20120424

REACTIONS (4)
  - MENORRHAGIA [None]
  - COITAL BLEEDING [None]
  - DEVICE EXPULSION [None]
  - DYSMENORRHOEA [None]
